FAERS Safety Report 15270617 (Version 3)
Quarter: 2018Q4

REPORT INFORMATION
  Report Type: Report from Study
  Country: FR (occurrence: FR)
  Receive Date: 20180813
  Receipt Date: 20181123
  Transmission Date: 20190204
  Serious: Yes (Hospitalization, Other)
  Sender: FDA-Public Use
  Company Number: FR-B.I. PHARMACEUTICALS,INC./RIDGEFIELD-2018-BI-035032

PATIENT
  Age: 83 Year
  Sex: Male
  Weight: 75 kg

DRUGS (1)
  1. OFEV [Suspect]
     Active Substance: NINTEDANIB
     Indication: IDIOPATHIC PULMONARY FIBROSIS
     Route: 048
     Dates: start: 20180526, end: 20180726

REACTIONS (12)
  - Weight decreased [Recovered/Resolved]
  - Epilepsy [Recovered/Resolved]
  - Anuria [Unknown]
  - Pyrexia [Not Recovered/Not Resolved]
  - Liver function test abnormal [Recovered/Resolved]
  - Nausea [Recovered/Resolved]
  - Hypotonia [Unknown]
  - Confusional state [Unknown]
  - Speech disorder [Unknown]
  - Pyrexia [Recovered/Resolved]
  - Lung infection [Not Recovered/Not Resolved]
  - Salivary hypersecretion [Unknown]

NARRATIVE: CASE EVENT DATE: 20180526
